FAERS Safety Report 12481930 (Version 1)
Quarter: 2016Q2

REPORT INFORMATION
  Report Type: Spontaneous
  Country: US (occurrence: US)
  Receive Date: 20160620
  Receipt Date: 20160620
  Transmission Date: 20160815
  Serious: Yes (Hospitalization)
  Sender: FDA-Public Use
  Company Number: US-SMITH AND NEPHEW, INC-2016SMT00519

PATIENT
  Age: 64 Year
  Sex: Male
  Weight: 86.17 kg

DRUGS (4)
  1. ^LANCET^ [Concomitant]
     Dosage: 4 U, UNK
  2. BABY ASPIRIN [Concomitant]
     Active Substance: ASPIRIN
     Dosage: UNK UNK, 1X/DAY
  3. NOVOLOG [Concomitant]
     Active Substance: INSULIN ASPART
     Dosage: 4 U, UNK
  4. REGRANEX [Suspect]
     Active Substance: BECAPLERMIN
     Indication: HYPERKERATOSIS
     Dosage: UNK, 1X/DAY
     Route: 061
     Dates: start: 201602

REACTIONS (3)
  - Cardiovascular disorder [Recovered/Resolved]
  - Peripheral swelling [Recovered/Resolved]
  - Erythema [Recovered/Resolved]

NARRATIVE: CASE EVENT DATE: 20160517
